FAERS Safety Report 15308451 (Version 1)
Quarter: 2018Q3

REPORT INFORMATION
  Report Type: Spontaneous
  Country: US (occurrence: US)
  Receive Date: 20180822
  Receipt Date: 20180822
  Transmission Date: 20181010
  Serious: No
  Sender: FDA-Public Use
  Company Number: US-PFIZER INC-2018336510

PATIENT
  Age: 50 Year
  Sex: Female
  Weight: 91 kg

DRUGS (7)
  1. IBUPROFEN. [Concomitant]
     Active Substance: IBUPROFEN
  2. COENZYME Q10 [Concomitant]
     Active Substance: UBIDECARENONE
  3. ALLER?TEC [Concomitant]
     Active Substance: CETIRIZINE HYDROCHLORIDE
  4. EQUATE FAMOTIDINE [Concomitant]
     Active Substance: FAMOTIDINE
     Indication: ACID BASE BALANCE ABNORMAL
  5. ADVIL PM [Suspect]
     Active Substance: DIPHENHYDRAMINE CITRATE\IBUPROFEN
     Indication: SLEEP DISORDER
  6. DIPHENHYDRAMINE. [Concomitant]
     Active Substance: DIPHENHYDRAMINE
  7. VITAMIN C [Concomitant]
     Active Substance: ASCORBIC ACID

REACTIONS (1)
  - Blister [Unknown]
